FAERS Safety Report 8020528-5 (Version None)
Quarter: 2012Q1

REPORT INFORMATION
  Report Type: 
  Country: None (occurrence: None)
  Receive Date: 20120103
  Receipt Date: 20111231
  Transmission Date: 20120608
  Serious: Yes (Hospitalization)
  Sender: FDA-Public Use
  Company Number: DE-ROCHE-1026723

PATIENT
  Age: 57 Year
  Sex: Female
  Weight: 60 kg

DRUGS (2)
  1. PEGINTERFERON ALFA-2B [Suspect]
     Indication: HEPATITIS C
     Route: 058
     Dates: start: 20111112
  2. COPEGUS [Suspect]
     Indication: HEPATITIS C
     Dates: start: 20111112

REACTIONS (3)
  - DEPRESSION [None]
  - HYPERVENTILATION [None]
  - DYSPNOEA AT REST [None]
